FAERS Safety Report 14262633 (Version 21)
Quarter: 2025Q1

REPORT INFORMATION
  Report Type: Report from Study
  Country: CZ (occurrence: CZ)
  Receive Date: 20171208
  Receipt Date: 20250102
  Transmission Date: 20250408
  Serious: Yes (Life-Threatening, Hospitalization, Other)
  Sender: AUROBINDO
  Company Number: CZ-PFIZER INC-2017486995

PATIENT
  Age: 82 Year
  Sex: Female

DRUGS (60)
  1. ALLOPURINOL [Suspect]
     Active Substance: ALLOPURINOL
     Indication: Product used for unknown indication
     Route: 065
  2. IBUPROFEN [Suspect]
     Active Substance: IBUPROFEN
     Indication: Pain
     Route: 065
  3. IBUPROFEN [Suspect]
     Active Substance: IBUPROFEN
     Indication: Analgesic therapy
  4. LEVETIRACETAM [Suspect]
     Active Substance: LEVETIRACETAM
     Indication: Generalised tonic-clonic seizure
     Dosage: 3000 MILLIGRAM, ONCE A DAY, 40 MG/KG
     Route: 042
  5. LEVETIRACETAM [Suspect]
     Active Substance: LEVETIRACETAM
     Indication: Seizure
     Route: 042
  6. LEVETIRACETAM [Suspect]
     Active Substance: LEVETIRACETAM
     Indication: Partial seizures
  7. LEVETIRACETAM [Suspect]
     Active Substance: LEVETIRACETAM
     Indication: Status epilepticus
  8. LEVETIRACETAM [Suspect]
     Active Substance: LEVETIRACETAM
     Indication: Epilepsy
  9. ACETAMINOPHEN [Suspect]
     Active Substance: ACETAMINOPHEN
     Indication: Analgesic therapy
     Route: 048
  10. ACETAMINOPHEN [Suspect]
     Active Substance: ACETAMINOPHEN
     Indication: Pain
  11. IBUPROFEN SODIUM [Suspect]
     Active Substance: IBUPROFEN SODIUM
     Indication: Pain
     Route: 048
  12. IBUPROFEN SODIUM [Suspect]
     Active Substance: IBUPROFEN SODIUM
     Indication: Analgesic therapy
  13. AMOXICILLIN TRIHYDRATE [Suspect]
     Active Substance: AMOXICILLIN
     Indication: Pneumonia
     Route: 048
  14. CEFTRIAXONE SODIUM [Suspect]
     Active Substance: CEFTRIAXONE SODIUM
     Indication: Pneumonia
     Route: 048
  15. DIAZEPAM [Suspect]
     Active Substance: DIAZEPAM
     Indication: Partial seizures
     Route: 042
  16. DIAZEPAM [Suspect]
     Active Substance: DIAZEPAM
     Indication: Seizure
  17. DIAZEPAM [Suspect]
     Active Substance: DIAZEPAM
     Indication: Hypertension
  18. DIAZEPAM [Suspect]
     Active Substance: DIAZEPAM
     Indication: Generalised tonic-clonic seizure
  19. DIAZEPAM [Suspect]
     Active Substance: DIAZEPAM
     Indication: Epilepsy
  20. PHENYTOIN [Suspect]
     Active Substance: PHENYTOIN
     Indication: Seizure
     Dosage: 20 MILLIGRAM/KILOGRAM, ONCE A DAY
     Route: 042
  21. PHENYTOIN [Suspect]
     Active Substance: PHENYTOIN
     Indication: Partial seizures
  22. PHENYTOIN [Suspect]
     Active Substance: PHENYTOIN
     Indication: Generalised tonic-clonic seizure
  23. PHENYTOIN [Suspect]
     Active Substance: PHENYTOIN
     Indication: Status epilepticus
  24. PHENYTOIN [Suspect]
     Active Substance: PHENYTOIN
     Indication: Epilepsy
  25. FLUCONAZOLE [Suspect]
     Active Substance: FLUCONAZOLE
     Indication: Antifungal treatment
     Route: 048
  26. FLUCONAZOLE [Suspect]
     Active Substance: FLUCONAZOLE
     Indication: Pneumonia
  27. GLIQUIDONE [Suspect]
     Active Substance: GLIQUIDONE
     Indication: Product used for unknown indication
     Route: 016
  28. METAMIZOLE SODIUM [Suspect]
     Active Substance: METAMIZOLE SODIUM
     Indication: Pain
     Route: 048
  29. METAMIZOLE [Suspect]
     Active Substance: METAMIZOLE
     Indication: Pain
     Route: 048
  30. ALLOPURINOL [Suspect]
     Active Substance: ALLOPURINOL
     Indication: Gout
     Route: 048
  31. VALPROIC ACID [Suspect]
     Active Substance: VALPROIC ACID
     Indication: Seizure
     Dosage: 30 MILLIGRAM/KILOGRAM, ONCE A DAY
     Route: 042
  32. VALPROIC ACID [Suspect]
     Active Substance: VALPROIC ACID
     Indication: Partial seizures
     Dosage: 30 MILLIGRAM/KILOGRAM, ONCE A DAY
     Route: 016
  33. VALPROIC ACID [Suspect]
     Active Substance: VALPROIC ACID
     Indication: Generalised tonic-clonic seizure
  34. VALPROIC ACID [Suspect]
     Active Substance: VALPROIC ACID
     Indication: Epilepsy
  35. VALPROIC ACID [Suspect]
     Active Substance: VALPROIC ACID
     Indication: Status epilepticus
  36. VALPROIC ACID [Suspect]
     Active Substance: VALPROIC ACID
     Indication: Analgesic therapy
  37. PROPOFOL [Suspect]
     Active Substance: PROPOFOL
     Indication: Clonic convulsion
     Route: 016
  38. PROPOFOL [Suspect]
     Active Substance: PROPOFOL
     Indication: Seizure
  39. PROPOFOL [Suspect]
     Active Substance: PROPOFOL
     Indication: Partial seizures
  40. PROPOFOL [Suspect]
     Active Substance: PROPOFOL
     Indication: Generalised tonic-clonic seizure
  41. PROPOFOL [Suspect]
     Active Substance: PROPOFOL
     Indication: Epilepsy
  42. SIMVASTATIN [Concomitant]
     Active Substance: SIMVASTATIN
     Indication: Hypercholesterolaemia
     Route: 048
  43. SIMVASTATIN [Concomitant]
     Active Substance: SIMVASTATIN
     Route: 016
  44. BETAXOLOL HYDROCHLORIDE [Concomitant]
     Active Substance: BETAXOLOL HYDROCHLORIDE
     Indication: Hypertension
     Route: 048
  45. ASPIRIN\GLYCINE [Concomitant]
     Active Substance: ASPIRIN\GLYCINE
     Indication: Product used for unknown indication
     Route: 048
  46. RAMIPRIL [Concomitant]
     Active Substance: RAMIPRIL
     Indication: Hypertension
     Route: 048
  47. EUTHYROX [Concomitant]
     Active Substance: LEVOTHYROXINE SODIUM
     Indication: Hypothyroidism
     Route: 048
  48. LERCANIDIPINE HYDROCHLORIDE [Concomitant]
     Active Substance: LERCANIDIPINE HYDROCHLORIDE
     Indication: Hypertension
     Route: 016
  49. LERCANIDIPINE HYDROCHLORIDE [Concomitant]
     Active Substance: LERCANIDIPINE HYDROCHLORIDE
     Route: 048
  50. Cynt [Concomitant]
     Indication: Hypertension
     Route: 048
  51. Cynt [Concomitant]
     Route: 016
  52. LERCANIDIPINE [Concomitant]
     Active Substance: LERCANIDIPINE
     Indication: Product used for unknown indication
     Route: 065
  53. ASPIRIN [Concomitant]
     Active Substance: ASPIRIN
     Indication: Product used for unknown indication
     Route: 065
  54. GLYCINE [Concomitant]
     Active Substance: GLYCINE
     Indication: Product used for unknown indication
     Route: 065
  55. GLIQUIDONE [Concomitant]
     Active Substance: GLIQUIDONE
     Indication: Hypertension
     Route: 048
  56. BETAXOLOL [Concomitant]
     Active Substance: BETAXOLOL
     Indication: Product used for unknown indication
     Route: 065
  57. RAMIPRIL [Concomitant]
     Active Substance: RAMIPRIL
     Indication: Product used for unknown indication
     Route: 048
  58. LEVOTHYROXINE SODIUM [Concomitant]
     Active Substance: LEVOTHYROXINE SODIUM
     Indication: Hypothyroidism
     Route: 048
  59. MOXONIDINE [Concomitant]
     Active Substance: MOXONIDINE
     Indication: Product used for unknown indication
     Route: 048
  60. SIMVASTATIN [Concomitant]
     Active Substance: SIMVASTATIN
     Indication: Product used for unknown indication
     Route: 016

REACTIONS (8)
  - Status epilepticus [Recovering/Resolving]
  - Pneumonia [Recovering/Resolving]
  - Sopor [Recovering/Resolving]
  - Depressed level of consciousness [Recovering/Resolving]
  - Rash [Recovered/Resolved with Sequelae]
  - Skin laceration [Recovered/Resolved with Sequelae]
  - Stevens-Johnson syndrome [Recovered/Resolved]
  - Drug ineffective [Recovering/Resolving]
